FAERS Safety Report 23172603 (Version 1)
Quarter: 2023Q4

REPORT INFORMATION
  Report Type: Spontaneous
  Country: RU (occurrence: RU)
  Receive Date: 20231110
  Receipt Date: 20231110
  Transmission Date: 20240109
  Serious: Yes (Death, Life-Threatening)
  Sender: FDA-Public Use
  Company Number: None

PATIENT
  Age: 62 Year
  Weight: 118 kg

DRUGS (1)
  1. ULTRAVIST [Suspect]
     Active Substance: IOPROMIDE
     Indication: Diagnostic procedure
     Dosage: 92 ML
     Route: 040
     Dates: start: 20231030, end: 20231030

REACTIONS (2)
  - Cardio-respiratory arrest [Fatal]
  - Cyanosis [Fatal]

NARRATIVE: CASE EVENT DATE: 20231030
